FAERS Safety Report 8825086 (Version 2)
Quarter: 2012Q4

REPORT INFORMATION
  Report Type: 
  Country: HR (occurrence: HR)
  Receive Date: 20121004
  Receipt Date: 20121011
  Transmission Date: 20130627
  Serious: Yes (Other)
  Sender: FDA-Public Use
  Company Number: HR-JNJFOC-20121000370

PATIENT
  Age: 47 Year
  Sex: Male

DRUGS (3)
  1. RISPOLEPT CONSTA [Suspect]
     Indication: SCHIZOPHRENIA
     Route: 030
     Dates: start: 20120629
  2. RISPOLEPT [Suspect]
     Indication: SCHIZOPHRENIA
     Dosage: 1,0,0
     Route: 048
  3. DEPAKINE CHRONO [Suspect]
     Indication: SCHIZOPHRENIA
     Route: 065

REACTIONS (1)
  - Hyponatraemia [Not Recovered/Not Resolved]
